FAERS Safety Report 22692287 (Version 2)
Quarter: 2024Q3

REPORT INFORMATION
  Report Type: Spontaneous
  Country: US (occurrence: US)
  Receive Date: 20230711
  Receipt Date: 20240719
  Transmission Date: 20241017
  Serious: No
  Sender: UPSHER-SMITH
  Company Number: US-UPSHER-SMITH LABORATORIES, LLC-2023USL00165

PATIENT
  Sex: Male
  Weight: 95.238 kg

DRUGS (5)
  1. TESTOSTERONE [Suspect]
     Active Substance: TESTOSTERONE
     Indication: Blood testosterone decreased
     Dosage: 50 MG (WHOLE TUBE) ONCE DAILY ON SHOULDERS AND AROUND CHEST
     Route: 061
     Dates: start: 202206
  2. TESTOSTERONE [Suspect]
     Active Substance: TESTOSTERONE
     Dosage: 50 MG (WHOLE TUBE) ONCE DAILY ON SHOULDERS AND AROUND CHEST
     Route: 061
     Dates: start: 202206
  3. VALSARTAN [Concomitant]
     Active Substance: VALSARTAN
  4. OMEPRAZOLE [Concomitant]
     Active Substance: OMEPRAZOLE
  5. VENLAFAXINE [Concomitant]
     Active Substance: VENLAFAXINE HYDROCHLORIDE

REACTIONS (4)
  - Blood testosterone decreased [Recovering/Resolving]
  - Memory impairment [Recovering/Resolving]
  - Blood pressure abnormal [Recovering/Resolving]
  - Product administered at inappropriate site [Recovered/Resolved]

NARRATIVE: CASE EVENT DATE: 20220101
